FAERS Safety Report 18903082 (Version 2)
Quarter: 2021Q1

REPORT INFORMATION
  Report Type: Report from Study
  Country: FR (occurrence: FR)
  Receive Date: 20210217
  Receipt Date: 20210312
  Transmission Date: 20210420
  Serious: Yes (Death, Life-Threatening, Other)
  Sender: FDA-Public Use
  Company Number: FR-ACCORD-217236

PATIENT
  Age: 70 Year
  Sex: Female

DRUGS (3)
  1. AMLODIPINE [Concomitant]
     Active Substance: AMLODIPINE BESYLATE
  2. ALLOPURINOL. [Suspect]
     Active Substance: ALLOPURINOL
     Indication: PRODUCT USED FOR UNKNOWN INDICATION
  3. CLOBETASOL [Concomitant]
     Active Substance: CLOBETASOL

REACTIONS (5)
  - Renal failure [Fatal]
  - Multiple organ dysfunction syndrome [Fatal]
  - Epstein-Barr virus infection reactivation [Fatal]
  - Hepatic failure [Fatal]
  - Drug reaction with eosinophilia and systemic symptoms [Fatal]
